FAERS Safety Report 18594163 (Version 1)
Quarter: 2020Q4

REPORT INFORMATION
  Report Type: Spontaneous
  Country: GB (occurrence: GB)
  Receive Date: 20201209
  Receipt Date: 20201209
  Transmission Date: 20210114
  Serious: Yes (Hospitalization, Other)
  Sender: FDA-Public Use
  Company Number: GB-AUROBINDO-AUR-APL-2020-060009

PATIENT
  Age: 31 Year
  Sex: Male

DRUGS (4)
  1. CLONAZEPAM. [Suspect]
     Active Substance: CLONAZEPAM
     Indication: HYPOMANIA
     Dosage: 1 MILLIGRAM, 3 TIMES A DAY
     Route: 065
  2. OLANZAPINE. [Suspect]
     Active Substance: OLANZAPINE
     Indication: HYPOMANIA
     Dosage: 10 MILLIGRAM, ONCE A DAY (NIGHTLY)
     Route: 065
  3. VALPROATE SODIUM. [Concomitant]
     Active Substance: VALPROATE SODIUM
     Indication: AFFECTIVE DISORDER
     Dosage: 500 MILLIGRAM, TWO TIMES A DAY
     Route: 065
  4. OLANZAPINE. [Suspect]
     Active Substance: OLANZAPINE
     Dosage: 15 MILLIGRAM, ONCE A DAY
     Route: 065

REACTIONS (6)
  - Oral candidiasis [Recovering/Resolving]
  - Neutropenia [Unknown]
  - Haemoglobin increased [Unknown]
  - Pancytopenia [Unknown]
  - Leukopenia [Unknown]
  - Fungal infection [Unknown]
